FAERS Safety Report 7970643-7 (Version None)
Quarter: 2011Q4

REPORT INFORMATION
  Report Type: 
  Country: None (occurrence: None)
  Receive Date: 20111212
  Receipt Date: 20111206
  Transmission Date: 20120403
  Serious: Yes (Other)
  Sender: FDA-Public Use
  Company Number: US-SANOFI-AVENTIS-2011SA080305

PATIENT
  Age: 65 Year
  Sex: Female
  Weight: 68 kg

DRUGS (9)
  1. PREMARIN [Concomitant]
     Indication: HORMONE REPLACEMENT THERAPY
  2. UNKNOWN MIGRAINE MEDICATION [Suspect]
     Indication: MIGRAINE
  3. SYNTHROID [Concomitant]
     Indication: HYPOTHYROIDISM
  4. OMEPRAZOLE [Concomitant]
     Indication: PROPHYLAXIS
  5. NAPROXEN SODIUM [Concomitant]
  6. LOVENOX [Suspect]
     Dates: start: 20100901, end: 20101101
  7. LOVENOX [Suspect]
     Indication: THROMBOSIS PROPHYLAXIS
     Dates: start: 20100901, end: 20101101
  8. CAFERGOT [Suspect]
     Indication: MIGRAINE
     Route: 048
     Dates: end: 20111001
  9. OTHER RESPIRATORY SYSTEM PRODUCTS [Concomitant]
     Indication: ASTHMA

REACTIONS (4)
  - RECTAL HAEMORRHAGE [None]
  - GASTROINTESTINAL HAEMORRHAGE [None]
  - MIGRAINE [None]
  - HAEMORRHOIDAL HAEMORRHAGE [None]
